FAERS Safety Report 14995868 (Version 3)
Quarter: 2018Q3

REPORT INFORMATION
  Report Type: Spontaneous
  Country: FR (occurrence: FR)
  Receive Date: 20180611
  Receipt Date: 20180927
  Transmission Date: 20181010
  Serious: Yes (Other)
  Sender: FDA-Public Use
  Company Number: FR-GILEAD-2018-0342883

PATIENT
  Sex: Male

DRUGS (1)
  1. ODEFSEY [Suspect]
     Active Substance: EMTRICITABINE\RILPIVIRINE HYDROCHLORIDE\TENOFOVIR ALAFENAMIDE FUMARATE
     Indication: PRODUCT USED FOR UNKNOWN INDICATION
     Dosage: 1 DF, UNK
     Route: 065
     Dates: start: 20180409, end: 20180528

REACTIONS (5)
  - Syphilis [Recovered/Resolved]
  - Cell death [Recovered/Resolved]
  - Therapy cessation [Recovered/Resolved]
  - Pancreatitis [Recovered/Resolved]
  - Lipase increased [Recovered/Resolved]
